FAERS Safety Report 11940396 (Version 2)
Quarter: 2016Q1

REPORT INFORMATION
  Report Type: Spontaneous
  Country: US (occurrence: US)
  Receive Date: 20160122
  Receipt Date: 20160210
  Transmission Date: 20160526
  Serious: Yes (Hospitalization, Other)
  Sender: FDA-Public Use
  Company Number: US-BRISTOL-MYERS SQUIBB COMPANY-BMS-2016-002598

PATIENT
  Age: 40 Year
  Sex: Male
  Weight: 96.15 kg

DRUGS (3)
  1. ZANTAC [Concomitant]
     Active Substance: RANITIDINE HYDROCHLORIDE
     Indication: PRODUCT USED FOR UNKNOWN INDICATION
     Route: 065
  2. ELIQUIS [Suspect]
     Active Substance: APIXABAN
     Indication: THROMBOSIS PROPHYLAXIS
     Dosage: 5 MG, UNK
     Route: 048
     Dates: start: 201512, end: 20160111
  3. LOVENOX [Concomitant]
     Active Substance: ENOXAPARIN SODIUM
     Indication: PRODUCT USED FOR UNKNOWN INDICATION
     Route: 065

REACTIONS (8)
  - Thrombosis [Unknown]
  - Erythema [Unknown]
  - Drug ineffective [Unknown]
  - Peripheral swelling [Unknown]
  - Vena cava filter insertion [Unknown]
  - Pain of skin [Unknown]
  - Weight decreased [Unknown]
  - Acne [Unknown]

NARRATIVE: CASE EVENT DATE: 20160111
